FAERS Safety Report 8423622-X (Version None)
Quarter: 2012Q2

REPORT INFORMATION
  Report Type: 
  Country: None (occurrence: None)
  Receive Date: 20120608
  Receipt Date: 20120529
  Transmission Date: 20120825
  Serious: No
  Sender: FDA-Public Use
  Company Number: US-ASTRAZENECA-2012SE35530

PATIENT
  Age: 52 Year
  Sex: Male

DRUGS (7)
  1. SEROQUEL [Suspect]
     Indication: BIPOLAR DISORDER
     Route: 048
  2. RITALIN [Concomitant]
  3. SEROQUEL [Suspect]
     Route: 048
  4. TRAZODONE HCL [Concomitant]
  5. WELLBUTRIN [Concomitant]
  6. STATTERA [Concomitant]
  7. CONCERTA [Concomitant]

REACTIONS (2)
  - ATTENTION DEFICIT/HYPERACTIVITY DISORDER [None]
  - THERAPEUTIC RESPONSE UNEXPECTED [None]
